FAERS Safety Report 24189089 (Version 1)
Quarter: 2024Q3

REPORT INFORMATION
  Report Type: Spontaneous
  Country: US (occurrence: US)
  Receive Date: 20240808
  Receipt Date: 20240808
  Transmission Date: 20241017
  Serious: No
  Sender: OTSUKA
  Company Number: US-OTSUKA-2024_010505

PATIENT
  Age: 10 Year
  Sex: Male

DRUGS (19)
  1. ARIPIPRAZOLE [Suspect]
     Active Substance: ARIPIPRAZOLE
     Indication: Post-traumatic stress disorder
     Dosage: 10 MG
     Route: 065
  2. ARIPIPRAZOLE [Suspect]
     Active Substance: ARIPIPRAZOLE
     Indication: Attention deficit hyperactivity disorder
  3. ARIPIPRAZOLE [Suspect]
     Active Substance: ARIPIPRAZOLE
     Indication: Reactive attachment disorder
  4. OLANZAPINE [Concomitant]
     Active Substance: OLANZAPINE
     Indication: Post-traumatic stress disorder
     Dosage: UNK
     Route: 065
  5. OLANZAPINE [Concomitant]
     Active Substance: OLANZAPINE
     Indication: Attention deficit hyperactivity disorder
  6. OLANZAPINE [Concomitant]
     Active Substance: OLANZAPINE
     Indication: Reactive attachment disorder
  7. CLONIDINE [Concomitant]
     Active Substance: CLONIDINE
     Indication: Post-traumatic stress disorder
     Dosage: 0.4 MG
     Route: 065
  8. CLONIDINE [Concomitant]
     Active Substance: CLONIDINE
     Indication: Attention deficit hyperactivity disorder
  9. CLONIDINE [Concomitant]
     Active Substance: CLONIDINE
     Indication: Reactive attachment disorder
  10. VALPROIC ACID [Concomitant]
     Active Substance: VALPROIC ACID
     Indication: Post-traumatic stress disorder
     Dosage: 375-1500 MG
     Route: 065
  11. VALPROIC ACID [Concomitant]
     Active Substance: VALPROIC ACID
     Indication: Attention deficit hyperactivity disorder
  12. VALPROIC ACID [Concomitant]
     Active Substance: VALPROIC ACID
     Indication: Reactive attachment disorder
  13. DESMOPRESSIN [Concomitant]
     Active Substance: DESMOPRESSIN
     Indication: Post-traumatic stress disorder
     Dosage: 0.6 MG
     Route: 065
  14. DESMOPRESSIN [Concomitant]
     Active Substance: DESMOPRESSIN
     Indication: Attention deficit hyperactivity disorder
  15. DESMOPRESSIN [Concomitant]
     Active Substance: DESMOPRESSIN
     Indication: Reactive attachment disorder
  16. SERTRALINE [Concomitant]
     Active Substance: SERTRALINE HYDROCHLORIDE
     Indication: Post-traumatic stress disorder
     Dosage: 25 MG
     Route: 065
  17. SERTRALINE [Concomitant]
     Active Substance: SERTRALINE HYDROCHLORIDE
     Indication: Attention deficit hyperactivity disorder
  18. SERTRALINE [Concomitant]
     Active Substance: SERTRALINE HYDROCHLORIDE
     Indication: Reactive attachment disorder
  19. LORAZEPAM [Concomitant]
     Active Substance: LORAZEPAM
     Indication: Agitation
     Dosage: 2 MG
     Route: 065

REACTIONS (1)
  - Product use in unapproved indication [Unknown]
